FAERS Safety Report 23654849 (Version 1)
Quarter: 2024Q1

REPORT INFORMATION
  Report Type: Spontaneous
  Country: NL (occurrence: NL)
  Receive Date: 20240320
  Receipt Date: 20240320
  Transmission Date: 20240409
  Serious: Yes (Other)
  Sender: FDA-Public Use
  Company Number: None

PATIENT
  Age: 67 Year
  Sex: Female
  Weight: 55 kg

DRUGS (4)
  1. AMOXICILLIN [Suspect]
     Active Substance: AMOXICILLIN
     Indication: Gastritis bacterial
     Dosage: 1 TABLET 2X PER DAY, / BRAND NAME NOT SPECIFIED, DISPERTABLET
     Route: 065
     Dates: start: 20231230
  2. ESOMEPRAZOLE [Suspect]
     Active Substance: ESOMEPRAZOLE
     Indication: Gastritis bacterial
     Dosage: THEN 1X 1 FOR 30 DAYS, CAPSULE MSR / BRAND NAME NOT SPECIFIED
     Route: 065
  3. ESOMEPRAZOLE [Suspect]
     Active Substance: ESOMEPRAZOLE
     Indication: Gastritis bacterial
     Dosage: FIRST WEEK 2X PER DAY 1, CAPSULE MSR / BRAND NAME NOT SPECIFIED
     Route: 065
     Dates: start: 20231230
  4. CLARITHROMYCIN [Suspect]
     Active Substance: CLARITHROMYCIN
     Indication: Gastritis bacterial
     Dosage: 2 TABLETS 1X PER DAY,  TABLET MGA 500MG / BRAND NAME NOT SPECIFIED
     Route: 065
     Dates: start: 20231230

REACTIONS (2)
  - Cutaneous vasculitis [Recovering/Resolving]
  - Diarrhoea [Recovering/Resolving]
